FAERS Safety Report 23458720 (Version 1)
Quarter: 2024Q1

REPORT INFORMATION
  Report Type: Report from Study
  Country: US (occurrence: US)
  Receive Date: 20240130
  Receipt Date: 20240130
  Transmission Date: 20240409
  Serious: No
  Sender: FDA-Public Use
  Company Number: US-ALXN-202401USA001636US

PATIENT
  Sex: Female

DRUGS (1)
  1. STRENSIQ [Suspect]
     Active Substance: ASFOTASE ALFA
     Indication: Product used for unknown indication
     Dosage: UNK
     Route: 065

REACTIONS (8)
  - Pain in extremity [Unknown]
  - Arthralgia [Unknown]
  - Osteopenia [Unknown]
  - Exostosis [Unknown]
  - Fatigue [Unknown]
  - Gait disturbance [Unknown]
  - Balance disorder [Unknown]
  - Brain fog [Unknown]

NARRATIVE: CASE EVENT DATE: 20231004
